FAERS Safety Report 7944052-0 (Version None)
Quarter: 2011Q4

REPORT INFORMATION
  Report Type: 
  Country: None (occurrence: None)
  Receive Date: 20111128
  Receipt Date: 20111121
  Transmission Date: 20120403
  Serious: Yes (Death)
  Sender: FDA-Public Use
  Company Number: FR-ASTRAZENECA-2011SE69962

PATIENT
  Age: 42 Year
  Sex: Female

DRUGS (5)
  1. XEROQUEL [Suspect]
     Route: 048
     Dates: start: 20111023, end: 20111023
  2. LITHIUM CARBONATE [Suspect]
     Route: 065
     Dates: end: 20111030
  3. XEROQUEL [Suspect]
     Route: 048
     Dates: start: 20111025, end: 20111025
  4. XEROQUEL [Suspect]
     Indication: BIPOLAR I DISORDER
     Route: 048
     Dates: start: 20111022, end: 20111022
  5. XEROQUEL [Suspect]
     Route: 048
     Dates: start: 20111024, end: 20111024

REACTIONS (3)
  - COMPLETED SUICIDE [None]
  - OEDEMA PERIPHERAL [None]
  - EYELID OEDEMA [None]
